FAERS Safety Report 6738950-3 (Version None)
Quarter: 2010Q2

REPORT INFORMATION
  Report Type: 
  Country: None (occurrence: None)
  Receive Date: 20100521
  Receipt Date: 20100505
  Transmission Date: 20101027
  Serious: Yes (Other)
  Sender: FDA-Public Use
  Company Number: TRP_06873_2010

PATIENT
  Sex: Male

DRUGS (11)
  1. INFERGEN [Suspect]
     Indication: HEPATITIS C
     Dosage: (15 UG QD SUBCUTANEOUS), (15 UG QD)
     Route: 058
     Dates: start: 20100217, end: 20100416
  2. RIBASPHERE [Suspect]
     Indication: HEPATITIS C
     Dosage: (3 DF PER DAY; ALSO NOTED AS 600 MG TWICE DAILY)
     Dates: start: 20061201, end: 20070101
  3. REBETOL [Suspect]
     Indication: HEPATITIS C
     Dosage: (600 MG BID), (1000 MG, 600 MG EACH MORNING AND 400 MG EACH EVENING)
     Dates: start: 20070101
  4. REBETOL [Suspect]
     Indication: HEPATITIS C
     Dosage: (600 MG BID), (1000 MG, 600 MG EACH MORNING AND 400 MG EACH EVENING)
     Dates: start: 20070101
  5. PEGASYS [Suspect]
     Indication: HEPATITIS C
     Dosage: (180 UG 1X/WEEK)
     Dates: start: 20061201, end: 20070101
  6. LIPITOR [Concomitant]
  7. CLONIDINE [Concomitant]
  8. PERCOCET [Concomitant]
  9. ANTIHYPERTENSIVES [Concomitant]
  10. FLOMAX [Concomitant]
  11. CHOLESTEROL [Concomitant]

REACTIONS (26)
  - ABDOMINAL PAIN UPPER [None]
  - ANXIETY [None]
  - ARTHRITIS [None]
  - ASTHENIA [None]
  - BACK PAIN [None]
  - BLOOD PRESSURE INCREASED [None]
  - CHILLS [None]
  - CONDITION AGGRAVATED [None]
  - DEPRESSION [None]
  - DIARRHOEA [None]
  - DRUG DOSE OMISSION [None]
  - DRUG INEFFECTIVE [None]
  - FATIGUE [None]
  - HEPATIC PAIN [None]
  - HYPERHIDROSIS [None]
  - INCORRECT DOSE ADMINISTERED [None]
  - LEFT ATRIAL DILATATION [None]
  - LIBIDO DECREASED [None]
  - LYMPHOCYTE PERCENTAGE INCREASED [None]
  - NAIL DISORDER [None]
  - NAUSEA [None]
  - NEUTROPHIL PERCENTAGE DECREASED [None]
  - PAIN [None]
  - PLATELET COUNT DECREASED [None]
  - STRESS [None]
  - WHITE BLOOD CELL COUNT DECREASED [None]
